FAERS Safety Report 19771678 (Version 2)
Quarter: 2021Q3

REPORT INFORMATION
  Report Type: Spontaneous
  Country: US (occurrence: US)
  Receive Date: 20210901
  Receipt Date: 20210903
  Transmission Date: 20211014
  Serious: No
  Sender: FDA-Public Use
  Company Number: US-JNJFOC-20210860527

PATIENT
  Age: 88 Year
  Sex: Male

DRUGS (1)
  1. IMODIUM MULTI?SYMPTOM RELIEF [Suspect]
     Active Substance: DIMETHICONE\LOPERAMIDE HYDROCHLORIDE
     Indication: DIARRHOEA
     Dosage: 1 TABLET TWICE A DAY
     Route: 048
     Dates: start: 20210701

REACTIONS (2)
  - Product packaging issue [Unknown]
  - Product package associated injury [Recovered/Resolved]

NARRATIVE: CASE EVENT DATE: 20210701
